FAERS Safety Report 8595738-9 (Version None)
Quarter: 2012Q3

REPORT INFORMATION
  Report Type: 
  Country: None (occurrence: None)
  Receive Date: 20120815
  Receipt Date: 20120802
  Transmission Date: 20120928
  Serious: Yes (Hospitalization)
  Sender: FDA-Public Use
  Company Number: PE-ROCHE-1096573

PATIENT
  Sex: Female

DRUGS (1)
  1. HERCEPTIN [Suspect]
     Indication: BREAST CANCER
     Route: 042
     Dates: start: 20110225, end: 20120606

REACTIONS (3)
  - ANGINA PECTORIS [None]
  - LEFT VENTRICULAR DYSFUNCTION [None]
  - TACHYCARDIA [None]
